FAERS Safety Report 17418241 (Version 1)
Quarter: 2020Q1

REPORT INFORMATION
  Report Type: Spontaneous
  Country: AU (occurrence: AU)
  Receive Date: 20200213
  Receipt Date: 20200213
  Transmission Date: 20200409
  Serious: Yes (Other)
  Sender: FDA-Public Use
  Company Number: AU-BEH-2020112894

PATIENT
  Age: 51 Year
  Sex: Female

DRUGS (2)
  1. PRIVIGEN [Suspect]
     Active Substance: HUMAN IMMUNOGLOBULIN G
     Indication: PEMPHIGUS
     Dosage: 130 MILLIGRAM, ONCE A MONTH
     Route: 042
     Dates: start: 201803, end: 201908
  2. CELLCEPT [Suspect]
     Active Substance: MYCOPHENOLATE MOFETIL\MYCOPHENOLATE MOFETIL HYDROCHLORIDE
     Indication: PEMPHIGUS
     Dosage: UNK 2 TIMES A DAY
     Route: 048
     Dates: start: 201803

REACTIONS (11)
  - Myalgia [Unknown]
  - Drug ineffective for unapproved indication [Unknown]
  - Loss of personal independence in daily activities [Recovered/Resolved]
  - No adverse event [Unknown]
  - Product use in unapproved indication [Unknown]
  - Malaise [Recovered/Resolved]
  - Drug intolerance [Unknown]
  - Arthralgia [Unknown]
  - Headache [Recovered/Resolved]
  - Peripheral swelling [Recovered/Resolved]
  - General physical health deterioration [Recovered/Resolved]

NARRATIVE: CASE EVENT DATE: 201810
